FAERS Safety Report 7105010-1 (Version None)
Quarter: 2010Q4

REPORT INFORMATION
  Report Type: 
  Country: None (occurrence: None)
  Receive Date: 20101116
  Receipt Date: 20101101
  Transmission Date: 20110411
  Serious: Yes (Hospitalization, Other)
  Sender: FDA-Public Use
  Company Number: TW-JNJFOC-20101104836

PATIENT
  Age: 25 Year
  Sex: Male
  Weight: 47 kg

DRUGS (11)
  1. TOPAMAX [Suspect]
     Indication: ILL-DEFINED DISORDER
     Route: 048
  2. TOPAMAX [Suspect]
     Route: 048
  3. LEVETIRACETAM [Suspect]
     Indication: ILL-DEFINED DISORDER
     Route: 065
  4. LEVETIRACETAM [Suspect]
     Route: 065
  5. LEVETIRACETAM [Suspect]
     Route: 065
  6. LORAZEPAM [Suspect]
     Indication: ILL-DEFINED DISORDER
     Dosage: INTERMITTENT
     Route: 065
  7. L-CARNITINE [Suspect]
     Indication: ILL-DEFINED DISORDER
     Route: 065
  8. COENZYME Q10 [Suspect]
     Indication: ILL-DEFINED DISORDER
     Route: 065
  9. UNKNOWN MEDICATION [Suspect]
     Indication: ILL-DEFINED DISORDER
     Route: 065
  10. GABAPENTIN [Suspect]
     Indication: ILL-DEFINED DISORDER
     Route: 065
  11. PIRACETAM [Suspect]
     Indication: ILL-DEFINED DISORDER
     Route: 065

REACTIONS (7)
  - AFFECT LABILITY [None]
  - CONFUSIONAL STATE [None]
  - ELECTROENCEPHALOGRAM ABNORMAL [None]
  - HALLUCINATION, VISUAL [None]
  - HEADACHE [None]
  - MELAS SYNDROME [None]
  - PROPHYLAXIS OF NAUSEA AND VOMITING [None]
